FAERS Safety Report 25605500 (Version 1)
Quarter: 2025Q3

REPORT INFORMATION
  Report Type: Spontaneous
  Country: EU (occurrence: EU)
  Receive Date: 20250725
  Receipt Date: 20250725
  Transmission Date: 20251020
  Serious: Yes (Hospitalization, Other)
  Sender: Steriscience PTE
  Company Number: None

PATIENT
  Age: 46 Year
  Sex: Male

DRUGS (6)
  1. VANCOMYCIN [Suspect]
     Active Substance: VANCOMYCIN
     Indication: Brain abscess
     Route: 065
     Dates: start: 20230922, end: 20231015
  2. MEROPENEM [Suspect]
     Active Substance: MEROPENEM
     Indication: Brain abscess
     Route: 065
     Dates: start: 20230922, end: 20231015
  3. AVELUMAB [Suspect]
     Active Substance: AVELUMAB
     Indication: Oligodendroglioma
     Route: 065
     Dates: start: 20230801, end: 20231201
  4. PERAMPANEL [Concomitant]
     Active Substance: PERAMPANEL
     Indication: Seizure
     Route: 065
     Dates: start: 2023
  5. LEVETIRACETAM [Concomitant]
     Active Substance: LEVETIRACETAM
     Indication: Seizure
     Route: 065
     Dates: start: 2023
  6. LACOSAMIDE [Concomitant]
     Active Substance: LACOSAMIDE
     Indication: Seizure
     Dates: start: 2023

REACTIONS (3)
  - Proteinuria [None]
  - Transaminases increased [None]
  - Drug reaction with eosinophilia and systemic symptoms [None]

NARRATIVE: CASE EVENT DATE: 20231001
